FAERS Safety Report 9074633 (Version 1)
Quarter: 2013Q1

REPORT INFORMATION
  Report Type: Report from Study
  Country: US (occurrence: US)
  Receive Date: 20130129
  Receipt Date: 20130129
  Transmission Date: 20140127
  Serious: No
  Sender: FDA-Public Use
  Company Number: US-ABBOTT-12P-163-0931641-00

PATIENT
  Age: 27 Year
  Sex: Female
  Weight: 54.48 kg

DRUGS (5)
  1. HUMIRA 40 MG/0.8 ML PEN [Suspect]
     Indication: CROHN^S DISEASE
     Dates: start: 20120406, end: 20120406
  2. HUMIRA 40 MG/0.8 ML PEN [Suspect]
     Dates: start: 20120420, end: 20120420
  3. PREDNISONE [Suspect]
     Indication: CROHN^S DISEASE
  4. PREDNISONE [Suspect]
  5. BENADRYL [Concomitant]
     Indication: INSOMNIA
     Dosage: AT BEDTIME

REACTIONS (4)
  - Hypoaesthesia [Not Recovered/Not Resolved]
  - Balance disorder [Not Recovered/Not Resolved]
  - Chest discomfort [Recovering/Resolving]
  - Insomnia [Recovering/Resolving]
